FAERS Safety Report 10545021 (Version 2)
Quarter: 2015Q1

REPORT INFORMATION
  Report Type: Spontaneous
  Country: IT (occurrence: IT)
  Receive Date: 20141027
  Receipt Date: 20150203
  Transmission Date: 20150720
  Serious: Yes (Hospitalization)
  Sender: FDA-Public Use
  Company Number: IT-SA-2014SA142224

PATIENT
  Age: 77 Year
  Sex: Male

DRUGS (6)
  1. ACTRAPID [Concomitant]
     Active Substance: INSULIN HUMAN
  2. CONGESCOR [Suspect]
     Active Substance: BISOPROLOL
     Route: 048
     Dates: start: 20120101, end: 20141009
  3. LASIX [Suspect]
     Active Substance: FUROSEMIDE
     Route: 048
     Dates: start: 20140601, end: 20141009
  4. LANTUS [Concomitant]
     Active Substance: INSULIN GLARGINE
     Indication: DIABETES MELLITUS
     Route: 058
  5. NORVASC [Suspect]
     Active Substance: AMLODIPINE BESYLATE
     Indication: HYPERTENSION
     Route: 048
     Dates: start: 20131001, end: 20141009
  6. ROCALTROL [Concomitant]
     Active Substance: CALCITRIOL

REACTIONS (2)
  - Hypotension [Recovering/Resolving]
  - Presyncope [Recovering/Resolving]

NARRATIVE: CASE EVENT DATE: 20141009
